FAERS Safety Report 19957721 (Version 1)
Quarter: 2021Q4

REPORT INFORMATION
  Report Type: Other
  Country: CA (occurrence: CA)
  Receive Date: 20211015
  Receipt Date: 20211015
  Transmission Date: 20220303
  Serious: Yes (Other)
  Sender: FDA-Public Use
  Company Number: CA-CELLTRION INC.-2021CA013858

PATIENT

DRUGS (4)
  1. RITUXIMAB [Suspect]
     Active Substance: RITUXIMAB
     Indication: Product used for unknown indication
     Route: 065
  2. METHOTREXATE [Suspect]
     Active Substance: METHOTREXATE
     Indication: Product used for unknown indication
     Dosage: 25.0 MILLIGRAM, 1 EVERY 1 WEEK
     Route: 058
  3. HUMIRA [Concomitant]
     Active Substance: ADALIMUMAB
     Dosage: 400.0 MILLIGRAM
     Route: 058
  4. PREDNISONE [Concomitant]
     Active Substance: PREDNISONE
     Route: 065

REACTIONS (7)
  - Productive cough [Unknown]
  - Psoriatic arthropathy [Unknown]
  - Cutaneous vasculitis [Unknown]
  - Oropharyngeal pain [Unknown]
  - Rhinorrhoea [Unknown]
  - Suspected COVID-19 [Unknown]
  - Drug ineffective [Unknown]
